FAERS Safety Report 9279585 (Version 3)
Quarter: 2013Q2

REPORT INFORMATION
  Report Type: Spontaneous
  Country: IT (occurrence: IT)
  Receive Date: 20130509
  Receipt Date: 20130516
  Transmission Date: 20140414
  Serious: Yes (Other)
  Sender: FDA-Public Use
  Company Number: IT-ROCHE-1222378

PATIENT
  Age: 67 Year
  Sex: Male
  Weight: 70 kg

DRUGS (5)
  1. XELODA [Suspect]
     Indication: BILE DUCT CANCER
     Route: 048
     Dates: start: 20130116, end: 20130116
  2. OXALIPLATIN [Suspect]
     Indication: BILE DUCT CANCER
     Route: 042
     Dates: start: 20130116, end: 20130116
  3. RANIDIL [Concomitant]
     Indication: BILE DUCT CANCER
     Route: 042
     Dates: start: 20130116, end: 20130116
  4. ONDANSETRON HIKMA [Concomitant]
     Route: 042
  5. SOLDESAM [Concomitant]
     Route: 042

REACTIONS (7)
  - Abdominal pain [Recovering/Resolving]
  - Asthenia [Recovering/Resolving]
  - Dry skin [Recovering/Resolving]
  - Formication [Recovering/Resolving]
  - Nausea [Recovering/Resolving]
  - Vomiting [Recovering/Resolving]
  - Pain in jaw [Recovering/Resolving]
